FAERS Safety Report 23141504 (Version 1)
Quarter: 2023Q4

REPORT INFORMATION
  Report Type: Spontaneous
  Country: MA (occurrence: MA)
  Receive Date: 20231103
  Receipt Date: 20231103
  Transmission Date: 20240110
  Serious: Yes (Hospitalization)
  Sender: FDA-Public Use
  Company Number: MA-EPICPHARMA-MA-2023EPCLIT01551

PATIENT
  Age: 64 Year
  Sex: Male

DRUGS (1)
  1. DICLOFENAC SODIUM [Suspect]
     Active Substance: DICLOFENAC\DICLOFENAC SODIUM
     Indication: Pain management
     Route: 013

REACTIONS (3)
  - Peripheral ischaemia [Recovered/Resolved]
  - Medication error [Unknown]
  - Product use in unapproved indication [Unknown]
